FAERS Safety Report 6596316-3 (Version None)
Quarter: 2010Q1

REPORT INFORMATION
  Report Type: 
  Country: None (occurrence: None)
  Receive Date: 20100223
  Receipt Date: 20100219
  Transmission Date: 20100710
  Serious: Yes (Other)
  Sender: FDA-Public Use
  Company Number: CH-ROCHE-686275

PATIENT
  Age: 61 Year
  Sex: Female

DRUGS (3)
  1. BEVACIZUMAB [Suspect]
     Route: 042
     Dates: start: 20090609, end: 20100121
  2. CAPECITABINE [Suspect]
     Dosage: FREQUENCY: ^D^
     Route: 048
     Dates: start: 20090609, end: 20100121
  3. IRINOTECAN HCL [Concomitant]
     Dates: start: 20090609, end: 20100121

REACTIONS (1)
  - MALIGNANT NEOPLASM PROGRESSION [None]
